FAERS Safety Report 4559734-0 (Version None)
Quarter: 2005Q1

REPORT INFORMATION
  Report Type: 
  Country: None (occurrence: None)
  Receive Date: 20050114
  Receipt Date: 20041104
  Transmission Date: 20050727
  Serious: Yes (Life-Threatening)
  Sender: FDA-Public Use
  Company Number: BDI-006651

PATIENT
  Age: 25 Year
  Sex: Female
  Weight: 61 kg

DRUGS (3)
  1. PROHANCE [Suspect]
     Indication: NUCLEAR MAGNETIC RESONANCE IMAGING BRAIN
     Dosage: 13 ML ONCE IV
     Route: 042
     Dates: start: 20041103, end: 20041103
  2. PROVENTIL [Concomitant]
  3. ALBUTEROL [Concomitant]

REACTIONS (9)
  - BURNING SENSATION [None]
  - DYSPNOEA [None]
  - FLUSHING [None]
  - NASAL CONGESTION [None]
  - ORAL PRURITUS [None]
  - PRURITUS [None]
  - SWOLLEN TONGUE [None]
  - TREMOR [None]
  - URTICARIA [None]
